FAERS Safety Report 11718619 (Version 4)
Quarter: 2015Q4

REPORT INFORMATION
  Report Type: Spontaneous
  Country: DE (occurrence: DE)
  Receive Date: 20151110
  Receipt Date: 20151214
  Transmission Date: 20160304
  Serious: Yes (Hospitalization, Other)
  Sender: FDA-Public Use
  Company Number: DE-AMGEN-DEUSP2015117619

PATIENT
  Age: 80 Year
  Sex: Female
  Weight: 83 kg

DRUGS (3)
  1. PROLIA [Suspect]
     Active Substance: DENOSUMAB
     Indication: OSTEOPOROSIS
     Dosage: 60 MG, Q6MO
     Route: 058
     Dates: start: 20140614, end: 20150612
  2. PROTELOS [Concomitant]
     Active Substance: STRONTIUM RANELATE
     Dosage: UNK
     Dates: start: 2008, end: 2014
  3. FOSAMAX [Concomitant]
     Active Substance: ALENDRONATE SODIUM
     Indication: OSTEOPOROSIS

REACTIONS (10)
  - Speech disorder [Unknown]
  - Confusional state [Unknown]
  - Apathy [Unknown]
  - Loss of consciousness [Unknown]
  - Personality change [Unknown]
  - Fatigue [Unknown]
  - Pyrexia [Unknown]
  - Chills [Unknown]
  - Headache [Unknown]
  - Amnesia [Unknown]

NARRATIVE: CASE EVENT DATE: 20150610
